FAERS Safety Report 5490557-4 (Version None)
Quarter: 2007Q4

REPORT INFORMATION
  Report Type: 
  Country: None (occurrence: None)
  Receive Date: 20071019
  Receipt Date: 20071015
  Transmission Date: 20080405
  Serious: Yes (Hospitalization, Other)
  Sender: FDA-Public Use
  Company Number: US-AVENTIS-200714726EU

PATIENT
  Age: 71 Year
  Sex: Female
  Weight: 70.8 kg

DRUGS (12)
  1. LASIX [Suspect]
     Dosage: DOSE: UNK
  2. ASPIRIN [Suspect]
     Dosage: DOSE: UNK
  3. DECADRON [Suspect]
     Dosage: DOSE: UNK
  4. DIGOXIN [Suspect]
     Dosage: DOSE: UNK
  5. DUONEB [Suspect]
     Dosage: DOSE: UNK
  6. LEVAQUIN [Suspect]
     Dosage: DOSE: UNK
  7. MUCOMYST                           /00082801/ [Suspect]
     Dosage: DOSE: UNK
  8. TEMODAR [Concomitant]
     Indication: GLIOBLASTOMA MULTIFORME
     Route: 048
     Dates: start: 20070806, end: 20070917
  9. COLACE [Concomitant]
  10. LIPITOR [Concomitant]
  11. LOVENOX [Concomitant]
  12. METOPROLOL [Concomitant]

REACTIONS (2)
  - ENCEPHALOPATHY [None]
  - FATIGUE [None]
